FAERS Safety Report 25632551 (Version 1)
Quarter: 2025Q3

REPORT INFORMATION
  Report Type: Spontaneous
  Country: US (occurrence: US)
  Receive Date: 20250801
  Receipt Date: 20250801
  Transmission Date: 20251020
  Serious: No
  Sender: GRIFOLS
  Company Number: US-IGSA-BIG0029888

PATIENT
  Age: 37 Year
  Sex: Female

DRUGS (4)
  1. GAMUNEX-C [Suspect]
     Active Substance: HUMAN IMMUNOGLOBULIN G
     Indication: Autonomic nervous system imbalance
     Dosage: 25 GRAM, Q.WK.
     Route: 042
     Dates: start: 20240626
  2. GAMUNEX-C [Suspect]
     Active Substance: HUMAN IMMUNOGLOBULIN G
     Indication: Sjogren^s syndrome
     Dosage: 25 GRAM, Q.WK.
     Route: 042
     Dates: start: 20240619
  3. GAMUNEX-C [Suspect]
     Active Substance: HUMAN IMMUNOGLOBULIN G
     Indication: Myasthenic syndrome
     Dosage: 25 GRAM, Q.WK.
     Route: 042
     Dates: start: 20230614
  4. GAMUNEX-C [Suspect]
     Active Substance: HUMAN IMMUNOGLOBULIN G
     Indication: Off label use

REACTIONS (4)
  - Head discomfort [Unknown]
  - Suture related complication [Unknown]
  - Ocular discomfort [Unknown]
  - Photophobia [Unknown]

NARRATIVE: CASE EVENT DATE: 20240626
